FAERS Safety Report 23335211 (Version 1)
Quarter: 2023Q4

REPORT INFORMATION
  Report Type: Spontaneous
  Country: GB (occurrence: GB)
  Receive Date: 20231225
  Receipt Date: 20231225
  Transmission Date: 20240110
  Serious: Yes (Hospitalization)
  Sender: FDA-Public Use
  Company Number: None

PATIENT
  Age: 83 Year

DRUGS (2)
  1. INDAPAMIDE [Interacting]
     Active Substance: INDAPAMIDE
     Dosage: NA
  2. OMEPRAZOLE [Interacting]
     Active Substance: OMEPRAZOLE
     Dosage: NA

REACTIONS (2)
  - Hyponatraemia [Recovering/Resolving]
  - Drug interaction [Unknown]
